FAERS Safety Report 8101589-1 (Version None)
Quarter: 2012Q1

REPORT INFORMATION
  Report Type: 
  Country: None (occurrence: None)
  Receive Date: 20120129
  Receipt Date: 20110928
  Transmission Date: 20120608
  Serious: No
  Sender: FDA-Public Use
  Company Number: US-ABBOTT-11P-163-0858661-00

PATIENT
  Age: 65 Year
  Sex: Female

DRUGS (5)
  1. VITAMINS NOS [Concomitant]
     Indication: PRODUCT USED FOR UNKNOWN INDICATION
  2. HUMIRA [Suspect]
     Dates: start: 20110928
  3. HUMIRA [Suspect]
     Indication: CROHN'S DISEASE
     Dates: start: 20110914, end: 20110914
  4. GABAPENTIN [Concomitant]
     Indication: NEUROPATHY PERIPHERAL
     Dosage: 100MG TID, 400MG 1XDAY
  5. LORAZEPAM [Concomitant]
     Indication: INSOMNIA
     Dosage: AT NIGHT

REACTIONS (1)
  - INJECTION SITE PAIN [None]
